FAERS Safety Report 15059150 (Version 2)
Quarter: 2019Q1

REPORT INFORMATION
  Report Type: Spontaneous
  Country: US (occurrence: US)
  Receive Date: 20180625
  Receipt Date: 20190111
  Transmission Date: 20190417
  Serious: No
  Sender: FDA-Public Use
  Company Number: US-MYLANLABS-2018M1038453

PATIENT
  Sex: Female
  Weight: 95 kg

DRUGS (1)
  1. AMITRIPTYLINE/CHLORDIAZEPOXIDE [Suspect]
     Active Substance: AMITRIPTYLINE\CHLORDIAZEPOXIDE
     Indication: PRODUCT USED FOR UNKNOWN INDICATION
     Dosage: UNK
     Route: 048

REACTIONS (1)
  - Dry mouth [Not Recovered/Not Resolved]
